FAERS Safety Report 18206942 (Version 1)
Quarter: 2020Q3

REPORT INFORMATION
  Report Type: Report from Study
  Country: US (occurrence: US)
  Receive Date: 20200828
  Receipt Date: 20200828
  Transmission Date: 20201103
  Serious: Yes (Other)
  Sender: FDA-Public Use
  Company Number: NVSC2020US231138

PATIENT
  Sex: Male

DRUGS (1)
  1. BEOVU [Suspect]
     Active Substance: BROLUCIZUMAB-DBLL
     Indication: NEOVASCULAR AGE-RELATED MACULAR DEGENERATION
     Route: 047
     Dates: start: 20200107

REACTIONS (1)
  - Macular oedema [Unknown]
